FAERS Safety Report 6391371-8 (Version None)
Quarter: 2009Q4

REPORT INFORMATION
  Report Type: 
  Country: None (occurrence: None)
  Receive Date: 20091006
  Receipt Date: 20091006
  Transmission Date: 20100525
  Serious: No
  Sender: FDA-Public Use
  Company Number: None

PATIENT
  Age: 74 Year
  Sex: Female
  Weight: 54.4316 kg

DRUGS (1)
  1. AZITHROMYCIN 250MG PLIVA HRVATSKA D.O.O [Suspect]
     Indication: BRONCHITIS
     Dosage: 2 TABLETS FIRST DAY PO 1 TABLET NEXT FOUR DAYS PO
     Route: 048
     Dates: start: 20090504, end: 20091001

REACTIONS (2)
  - AGEUSIA [None]
  - ANOSMIA [None]
